FAERS Safety Report 25651071 (Version 1)
Quarter: 2025Q3

REPORT INFORMATION
  Report Type: Spontaneous
  Country: US (occurrence: None)
  Receive Date: 20250806
  Receipt Date: 20250806
  Transmission Date: 20251020
  Serious: Yes (Disabling, Other)
  Sender: FDA-CTU
  Company Number: None

PATIENT
  Age: 55 Year
  Sex: Female
  Weight: 64.35 kg

DRUGS (19)
  1. PROHANCE [Suspect]
     Active Substance: GADOTERIDOL
     Indication: Magnetic resonance imaging
     Dates: start: 20250731, end: 20250731
  2. PROHANCE [Suspect]
     Active Substance: GADOTERIDOL
     Indication: Scan with contrast
  3. CLARITIN [Concomitant]
     Active Substance: LORATADINE
  4. SINGULAIR [Concomitant]
     Active Substance: MONTELUKAST SODIUM
  5. XOPENEX [Concomitant]
     Active Substance: LEVALBUTEROL HYDROCHLORIDE
  6. ASTELIN [Concomitant]
     Active Substance: AZELASTINE HYDROCHLORIDE
  7. ESTROGENS [Concomitant]
     Active Substance: ESTROGENS
  8. ASPIRIN [Concomitant]
     Active Substance: ASPIRIN
  9. DULERA [Concomitant]
     Active Substance: FORMOTEROL FUMARATE DIHYDRATE\MOMETASONE FUROATE
  10. WELLBUTRIN [Concomitant]
     Active Substance: BUPROPION HYDROCHLORIDE
  11. THYROID [Concomitant]
     Active Substance: LEVOTHYROXINE\LIOTHYRONINE
  12. pyrodostigmine [Concomitant]
  13. nuvogil [Concomitant]
  14. naratryptan [Concomitant]
  15. RESTASIS [Concomitant]
     Active Substance: CYCLOSPORINE
  16. DEVICE [Concomitant]
     Active Substance: DEVICE
  17. REFRESH SOLUTION NOS [Concomitant]
     Active Substance: CARBOXYMETHYLCELLULOSE SODIUM\GLYCERIN
  18. VITAMINS [Concomitant]
     Active Substance: VITAMINS
  19. ayr gel [Concomitant]

REACTIONS (8)
  - Contrast media reaction [None]
  - Musculoskeletal disorder [None]
  - Ehlers-Danlos syndrome [None]
  - Movement disorder [None]
  - Paraesthesia [None]
  - Hypoaesthesia [None]
  - Joint swelling [None]
  - Muscle tightness [None]

NARRATIVE: CASE EVENT DATE: 20250731
